FAERS Safety Report 14337196 (Version 6)
Quarter: 2018Q2

REPORT INFORMATION
  Report Type: Report from Study
  Country: GB (occurrence: GB)
  Receive Date: 20171229
  Receipt Date: 20180621
  Transmission Date: 20180711
  Serious: Yes (Hospitalization)
  Sender: FDA-Public Use
  Company Number: GB-TEVA-2017-GB-837445

PATIENT
  Age: 60 Year
  Sex: Female
  Weight: 52.3 kg

DRUGS (31)
  1. ETOPOSIDE. [Suspect]
     Active Substance: ETOPOSIDE
     Indication: PLASMA CELL MYELOMA
     Dosage: 60 MILLIGRAM DAILY; 60 MG, QD
     Route: 065
     Dates: start: 20171108, end: 20171111
  2. ADRIAMYCIN [Suspect]
     Active Substance: DOXORUBICIN HYDROCHLORIDE
     Indication: PLASMA CELL MYELOMA
     Dosage: 15 MILLIGRAM DAILY; 15 MG, QD
     Route: 042
     Dates: start: 20171108, end: 20171111
  3. IXAZOMIB [Suspect]
     Active Substance: IXAZOMIB
     Route: 048
  4. DEXAMETHASONE. [Suspect]
     Active Substance: DEXAMETHASONE
     Dosage: 40 MG, 1/WEEK
     Route: 048
     Dates: start: 20170320
  5. DEXAMETHASONE. [Suspect]
     Active Substance: DEXAMETHASONE
     Dosage: 20 MILLIGRAM DAILY; 20 MG, UNK
     Route: 048
     Dates: start: 20170413
  6. VELCADE [Concomitant]
     Active Substance: BORTEZOMIB
     Indication: PLASMA CELL MYELOMA
     Dosage: 2 MG, UNK
     Route: 058
     Dates: start: 20171125
  7. CYTARABINE. [Concomitant]
     Active Substance: CYTARABINE
     Dosage: 50 MG, Q2WEEKS
     Route: 042
     Dates: start: 20171115, end: 20171221
  8. REVLIMID [Suspect]
     Active Substance: LENALIDOMIDE
     Indication: PLASMA CELL MYELOMA
     Dosage: 15 MG, UNK
     Route: 048
     Dates: start: 20170511, end: 20171019
  9. HYDROCORTISONE. [Concomitant]
     Active Substance: HYDROCORTISONE
     Indication: PLASMA CELL MYELOMA
     Dosage: 25 MG, Q2WEEKS
     Route: 065
     Dates: start: 20171115, end: 20171221
  10. FILGRASTIM [Concomitant]
     Active Substance: FILGRASTIM
     Indication: PRODUCT USED FOR UNKNOWN INDICATION
     Route: 065
  11. CYTOXAN [Suspect]
     Active Substance: CYCLOPHOSPHAMIDE
     Indication: PLASMA CELL MYELOMA
     Dosage: 600 MILLIGRAM DAILY;
     Route: 042
     Dates: start: 20171108, end: 20171111
  12. METHOTREXATE. [Concomitant]
     Active Substance: METHOTREXATE
     Route: 065
  13. ZOLEDRONIC ACID [Concomitant]
     Active Substance: ZOLEDRONIC ACID
     Indication: PRODUCT USED FOR UNKNOWN INDICATION
     Route: 065
  14. ASA [Concomitant]
     Active Substance: ASPIRIN
     Indication: THROMBOSIS PROPHYLAXIS
     Dosage: UNK
     Route: 065
  15. DECADRON [Suspect]
     Active Substance: DEXAMETHASONE
     Dosage: 40 MG, QD
     Route: 048
     Dates: start: 20171108, end: 20171111
  16. DEXAMETHASONE. [Suspect]
     Active Substance: DEXAMETHASONE
     Indication: PLASMA CELL MYELOMA
     Dosage: 15 MG, UNK
     Route: 048
     Dates: start: 20170320, end: 20171019
  17. DEXAMETHASONE. [Suspect]
     Active Substance: DEXAMETHASONE
     Route: 048
     Dates: start: 20171108
  18. METHOTREXATE. [Concomitant]
     Active Substance: METHOTREXATE
     Indication: PLASMA CELL MYELOMA
     Dosage: 12.5 MG, Q2WEEKS
     Route: 042
     Dates: start: 20171115, end: 20171129
  19. VELCADE [Concomitant]
     Active Substance: BORTEZOMIB
     Route: 058
     Dates: start: 20171115
  20. DECADRON [Suspect]
     Active Substance: DEXAMETHASONE
     Indication: PLASMA CELL MYELOMA
     Dosage: 40 MG, 1/WEEK
     Route: 048
     Dates: start: 20170320
  21. PLATINOL [Suspect]
     Active Substance: CISPLATIN
     Indication: PLASMA CELL MYELOMA
     Dosage: 15 MILLIGRAM DAILY; 15 MG, QD
     Route: 042
     Dates: start: 20171108, end: 20171111
  22. DECADRON [Suspect]
     Active Substance: DEXAMETHASONE
     Dosage: 20 MG, UNK
     Route: 048
     Dates: start: 20170413
  23. CYTARABINE. [Concomitant]
     Active Substance: CYTARABINE
     Indication: PLASMA CELL MYELOMA
     Dosage: 50 MG, Q2WEEKS
     Dates: start: 20171115, end: 20171129
  24. TINZAPARIN [Concomitant]
     Active Substance: TINZAPARIN
     Indication: THROMBOSIS PROPHYLAXIS
     Dosage: UNK
     Route: 065
  25. IXAZOMIB [Suspect]
     Active Substance: IXAZOMIB
     Indication: PLASMA CELL MYELOMA
     Dosage: 3 MG, UNK
     Route: 048
     Dates: start: 20170706, end: 20170724
  26. IXAZOMIB [Suspect]
     Active Substance: IXAZOMIB
     Dosage: 4 MG, UNK
     Route: 048
     Dates: start: 20170320, end: 20170724
  27. REVLIMID [Suspect]
     Active Substance: LENALIDOMIDE
     Dosage: 25 MG, UNK
     Route: 048
     Dates: start: 20170320
  28. HYDROCORTISONE. [Concomitant]
     Active Substance: HYDROCORTISONE
     Indication: PRODUCT USED FOR UNKNOWN INDICATION
  29. HEPARIN [Concomitant]
     Active Substance: HEPARIN SODIUM
     Indication: THROMBOSIS PROPHYLAXIS
     Route: 065
  30. DEXAMETHASONE. [Suspect]
     Active Substance: DEXAMETHASONE
     Dosage: 20 MILLIGRAM DAILY; 20 MG, QD
     Route: 048
     Dates: start: 20171108, end: 20171111
  31. METHOTREXATE. [Concomitant]
     Active Substance: METHOTREXATE
     Indication: PRODUCT USED FOR UNKNOWN INDICATION
     Dosage: 12.5 MG, Q2WEEKS
     Route: 042
     Dates: start: 20171115, end: 20171221

REACTIONS (2)
  - Febrile neutropenia [Recovered/Resolved]
  - Diarrhoea haemorrhagic [Recovered/Resolved]

NARRATIVE: CASE EVENT DATE: 20170728
